APPROVED DRUG PRODUCT: TPN
Active Ingredient: NIACINAMIDE; PYRIDOXINE HYDROCHLORIDE; TYROSINE
Strength: 15MG/5ML;3.75MG/5ML;600MG/5ML
Dosage Form/Route: SUSPENSION;ORAL
Application: N008378 | Product #003
Applicant: INTERNATIONAL MINERALS CHEMICAL CORP
Approved: Approved Prior to Jan 1, 1982 | RLD: No | RS: No | Type: DISCN